FAERS Safety Report 4386264-1 (Version None)
Quarter: 2004Q2

REPORT INFORMATION
  Report Type: 
  Country: None (occurrence: None)
  Receive Date: 20040622
  Receipt Date: 20040608
  Transmission Date: 20050107
  Serious: Yes (Other)
  Sender: FDA-Public Use
  Company Number: S04-FRA-02569-01

PATIENT
  Age: 83 Year
  Sex: Female

DRUGS (3)
  1. EBIXA (MEMANTINE) [Suspect]
     Indication: DEMENTIA ALZHEIMER'S TYPE
     Dosage: 20 MG QD PO
     Route: 048
     Dates: start: 20040220
  2. ENALAPRIL MALEATE [Concomitant]
  3. ZOLPIDEM [Concomitant]

REACTIONS (5)
  - AGITATION [None]
  - ANXIETY [None]
  - HALLUCINATION, VISUAL [None]
  - LOGORRHOEA [None]
  - TREMOR [None]
